FAERS Safety Report 6705639-6 (Version None)
Quarter: 2010Q2

REPORT INFORMATION
  Report Type: 
  Country: None (occurrence: None)
  Receive Date: 20100503
  Receipt Date: 20100426
  Transmission Date: 20101027
  Serious: No
  Sender: FDA-Public Use
  Company Number: 2009BI019810

PATIENT
  Sex: Female

DRUGS (3)
  1. TYSABRI [Suspect]
     Indication: MULTIPLE SCLEROSIS
     Route: 042
     Dates: start: 20050101, end: 20050201
  2. TYSABRI [Suspect]
     Route: 042
     Dates: start: 20070712, end: 20090527
  3. TYSABRI [Suspect]
     Route: 042
     Dates: start: 20100101

REACTIONS (6)
  - BALANCE DISORDER [None]
  - DRUG EFFECT DECREASED [None]
  - FATIGUE [None]
  - MOOD SWINGS [None]
  - MUSCULOSKELETAL STIFFNESS [None]
  - PAIN [None]
